FAERS Safety Report 24416682 (Version 3)
Quarter: 2025Q1

REPORT INFORMATION
  Report Type: Report from Study
  Country: US (occurrence: US)
  Receive Date: 20241009
  Receipt Date: 20250211
  Transmission Date: 20250408
  Serious: Yes (Life-Threatening, Hospitalization)
  Sender: ULTRAGENYX PHARMACEUTICAL
  Company Number: US-ULTRAGENYX PHARMACEUTICAL INC.-US-UGX-24-01776

PATIENT
  Sex: Female

DRUGS (2)
  1. DOJOLVI [Suspect]
     Active Substance: TRIHEPTANOIN
     Indication: Fatty acid oxidation disorder
     Dosage: 7 MILLILITER, EIGHT TIMES A DAY (EVERY 3 HOURS), VIA G TUBE
     Dates: start: 202101
  2. DOJOLVI [Suspect]
     Active Substance: TRIHEPTANOIN
     Dosage: 7 MILLILITER, EIGHT TIMES A DAY (EVERY 3 HOURS), VIA G TUBE
     Dates: start: 20221019

REACTIONS (13)
  - Cardiac arrest [Unknown]
  - Illness [Unknown]
  - Endotracheal intubation [Not Recovered/Not Resolved]
  - COVID-19 [Unknown]
  - Pneumonia [Unknown]
  - Decreased appetite [Not Recovered/Not Resolved]
  - Blood glucose decreased [Not Recovered/Not Resolved]
  - Asthenia [Not Recovered/Not Resolved]
  - Gait inability [Not Recovered/Not Resolved]
  - Muscle hypertrophy [Not Recovered/Not Resolved]
  - Overweight [Unknown]
  - Tinea infection [Unknown]
  - Nasopharyngitis [Unknown]

NARRATIVE: CASE EVENT DATE: 20240101
